FAERS Safety Report 5202552-0 (Version None)
Quarter: 2006Q4

REPORT INFORMATION
  Report Type: 
  Country: None (occurrence: None)
  Receive Date: 20061018
  Receipt Date: 20041217
  Transmission Date: 20070319
  Serious: Yes (Other)
  Sender: FDA-Public Use
  Company Number: PHEH2004US10240

PATIENT
  Age: 51 Year
  Sex: Female

DRUGS (2)
  1. ZOMETA [Suspect]
     Indication: METASTASES TO BONE
     Dosage: UNK, QMO, INTRAVENOUS
     Route: 042
     Dates: start: 20040701
  2. FEMARA [Concomitant]

REACTIONS (7)
  - ARTHRALGIA [None]
  - BLOOD PRESSURE INCREASED [None]
  - BONE PAIN [None]
  - BREAST CANCER [None]
  - HOT FLUSH [None]
  - INFLUENZA LIKE ILLNESS [None]
  - PYREXIA [None]
